FAERS Safety Report 26145335 (Version 1)
Quarter: 2025Q4

REPORT INFORMATION
  Report Type: Report from Study
  Country: US (occurrence: US)
  Receive Date: 20251211
  Receipt Date: 20251211
  Transmission Date: 20260118
  Serious: Yes (Other)
  Sender: ALEXION PHARMACEUTICALS
  Company Number: US-AstraZeneca-CH-01010461A

PATIENT
  Sex: Male

DRUGS (1)
  1. OLAPARIB [Suspect]
     Active Substance: OLAPARIB
     Indication: Neoplasm malignant
     Dosage: 300 MILLIGRAM, Q12H
     Dates: start: 20251011

REACTIONS (3)
  - Hypokalaemia [Unknown]
  - Fatigue [Unknown]
  - Hypophosphataemia [Unknown]
